FAERS Safety Report 18526757 (Version 1)
Quarter: 2020Q4

REPORT INFORMATION
  Report Type: Report from Study
  Country: CA (occurrence: CA)
  Receive Date: 20201120
  Receipt Date: 20201120
  Transmission Date: 20210114
  Serious: Yes (Hospitalization)
  Sender: FDA-Public Use
  Company Number: CA-JNJFOC-20201115057

PATIENT
  Age: 78 Year
  Sex: Female

DRUGS (10)
  1. WARFARIN [Concomitant]
     Active Substance: WARFARIN
  2. ASA [Concomitant]
     Active Substance: ASPIRIN
  3. FUROSEMIDE. [Concomitant]
     Active Substance: FUROSEMIDE
  4. AMLODIPINE [Concomitant]
     Active Substance: AMLODIPINE BESYLATE
  5. TRACLEER [Suspect]
     Active Substance: BOSENTAN
     Indication: PULMONARY HYPERTENSION
     Route: 048
     Dates: start: 20130901
  6. ATORVASTATIN [Concomitant]
     Active Substance: ATORVASTATIN
  7. SLOW K [Concomitant]
     Active Substance: POTASSIUM CHLORIDE
  8. SPIRONOLACTONE. [Concomitant]
     Active Substance: SPIRONOLACTONE
  9. LANOXIN [Concomitant]
     Active Substance: DIGOXIN
  10. METAMUCIL                          /00091301/ [Concomitant]
     Active Substance: PSYLLIUM HUSK

REACTIONS (1)
  - Extradural abscess [Unknown]

NARRATIVE: CASE EVENT DATE: 20200905
